FAERS Safety Report 7288333-5 (Version None)
Quarter: 2011Q1

REPORT INFORMATION
  Report Type: 
  Country: None (occurrence: None)
  Receive Date: 20110211
  Receipt Date: 20110207
  Transmission Date: 20110831
  Serious: Yes (Hospitalization)
  Sender: FDA-Public Use
  Company Number: DE-PFIZER INC-DE-WYE-H08549809

PATIENT
  Age: 72 Year
  Sex: Female
  Weight: 77 kg

DRUGS (7)
  1. TOREM [Concomitant]
     Indication: RENAL HYPERTENSION
     Dosage: 10 MG, 1X/DAY
     Route: 048
     Dates: start: 20050101
  2. BISOPROLOL [Concomitant]
     Indication: RENAL HYPERTENSION
     Dosage: 10 MG, 2X/DAY
     Route: 048
     Dates: start: 20000101
  3. COAPROVEL [Concomitant]
     Indication: RENAL HYPERTENSION
     Dosage: 1 DF, 1X/DAY
     Route: 048
     Dates: start: 20050101
  4. FALITHROM [Concomitant]
     Indication: ATRIAL FIBRILLATION
     Dosage: UNK
     Route: 048
     Dates: start: 20050101
  5. PANTOPRAZOLE [Suspect]
     Indication: PROPHYLAXIS AGAINST GASTROINTESTINAL ULCER
     Dosage: 40.0 MG, 1X/DAY
     Route: 048
     Dates: start: 20070101
  6. SIMVASTATIN [Concomitant]
     Indication: HYPERLIPIDAEMIA
     Dosage: 20 MG, 1X/DAY
     Route: 048
     Dates: end: 20080808
  7. CLINDAMYCIN [Suspect]
     Indication: ERYSIPELAS
     Dosage: 600.0 MG, 2X/DAY
     Route: 048
     Dates: start: 20080703, end: 20080721

REACTIONS (1)
  - CLOSTRIDIUM DIFFICILE COLITIS [None]
